FAERS Safety Report 4454972-X (Version None)
Quarter: 2004Q3

REPORT INFORMATION
  Report Type: 
  Country: None (occurrence: None)
  Receive Date: 20040824
  Receipt Date: 20040525
  Transmission Date: 20050211
  Serious: No
  Sender: FDA-Public Use
  Company Number: SU-2004-002396

PATIENT
  Age: 75 Year
  Sex: Female
  Weight: 78.9259 kg

DRUGS (7)
  1. BENICAR [Suspect]
     Indication: HYPERTENSION
     Dosage: 40 MG QD PO
     Route: 048
     Dates: start: 20040302, end: 20040331
  2. PLENDIL [Concomitant]
  3. LOPRESSOR [Concomitant]
  4. AVELOX [Concomitant]
  5. SPIRONOLACTONE [Concomitant]
  6. LABETALOL HCL [Concomitant]
  7. MULTIVITAMIN [Concomitant]

REACTIONS (1)
  - ALOPECIA [None]
